FAERS Safety Report 4484957-9 (Version None)
Quarter: 2004Q3

REPORT INFORMATION
  Report Type: 
  Country: None (occurrence: None)
  Receive Date: 20040921
  Receipt Date: 20030905
  Transmission Date: 20050211
  Serious: Yes (Other)
  Sender: FDA-Public Use
  Company Number: 163-20785-03060798

PATIENT
  Age: 74 Year
  Sex: Male

DRUGS (13)
  1. THALOMID [Suspect]
     Indication: MULTIPLE MYELOMA
     Dosage: 200 MG, QD, ORAL;  100 MG, QD, ORAL
     Route: 048
     Dates: start: 20021126, end: 20030117
  2. THALOMID [Suspect]
     Indication: MULTIPLE MYELOMA
     Dosage: 200 MG, QD, ORAL;  100 MG, QD, ORAL
     Route: 048
     Dates: start: 20030128, end: 20030210
  3. SYNTHROID [Concomitant]
  4. MIACALCIN [Concomitant]
  5. ZOCOR [Concomitant]
  6. ALBUTEROL [Concomitant]
  7. DYAZIDE [Concomitant]
  8. FLONASE [Concomitant]
  9. PERCOCET [Concomitant]
  10. ATIVAN [Concomitant]
  11. DILAUDID [Concomitant]
  12. HYOSCYAMINE SULFATE AND PHENOBARBITAL [Concomitant]
  13. AREDIA [Concomitant]

REACTIONS (3)
  - PNEUMONIA [None]
  - RASH [None]
  - RASH PRURITIC [None]
